FAERS Safety Report 4352924-1 (Version None)
Quarter: 2004Q2

REPORT INFORMATION
  Report Type: 
  Country: None (occurrence: None)
  Receive Date: 20040429
  Receipt Date: 20040421
  Transmission Date: 20050107
  Serious: Yes (Hospitalization)
  Sender: FDA-Public Use
  Company Number: J081-002-001632

PATIENT
  Age: 76 Year

DRUGS (4)
  1. ARICEPT [Suspect]
     Indication: PARKINSONISM
     Dosage: 3 MG, 1 IN 1 D, ORAL
     Route: 048
     Dates: start: 20040324, end: 20040329
  2. SINEMET [Concomitant]
  3. BUFFERIN [Concomitant]
  4. ATELEC (CLINIDIPINE) [Concomitant]

REACTIONS (2)
  - ABASIA [None]
  - PARKINSONISM [None]
